FAERS Safety Report 9249901 (Version 1)
Quarter: 2013Q2

REPORT INFORMATION
  Report Type: Spontaneous
  Country: GB (occurrence: GB)
  Receive Date: 20130423
  Receipt Date: 20130423
  Transmission Date: 20140414
  Serious: Yes (Other)
  Sender: FDA-Public Use
  Company Number: GB-ROXANE LABORATORIES, INC.-2013-RO-00521RO

PATIENT
  Age: 57 Year
  Sex: Female

DRUGS (10)
  1. LITHIUM CARBONATE [Suspect]
     Indication: BIPOLAR DISORDER
     Dates: start: 1979, end: 1989
  2. PREDNISONE [Suspect]
     Indication: RENAL TRANSPLANT
     Dates: start: 2000
  3. PREDNISONE [Suspect]
     Dosage: 60 MG
     Dates: start: 2006
  4. PREDNISONE [Suspect]
     Dosage: 10 MG
  5. AZATHIOPRINE [Suspect]
     Indication: RENAL TRANSPLANT
     Dosage: 200 MG
  6. LOSARTAN POTASSIUM USP [Suspect]
     Dosage: 100 MG
     Route: 048
     Dates: start: 200512
  7. MYCOPHENOLATE MOFETIL [Suspect]
     Indication: GLOMERULONEPHRITIS MEMBRANOPROLIFERATIVE
     Dosage: 1000 MG
  8. CYCLOSPORINE [Suspect]
     Dosage: 800 MG
     Route: 048
  9. CYCLOSPORINE [Suspect]
     Dosage: 150 MG
     Route: 048
     Dates: end: 200611
  10. THYMOGLOBULIN [Suspect]
     Indication: RENAL TRANSPLANT

REACTIONS (4)
  - Glomerulonephritis membranoproliferative [Unknown]
  - Toxicity to various agents [Unknown]
  - Renal failure chronic [Not Recovered/Not Resolved]
  - Diarrhoea [Unknown]
